APPROVED DRUG PRODUCT: NAPROXEN
Active Ingredient: NAPROXEN
Strength: 375MG
Dosage Form/Route: TABLET;ORAL
Application: A075927 | Product #002 | TE Code: AB
Applicant: AMNEAL PHARMACEUTICALS NY LLC
Approved: Dec 18, 2001 | RLD: No | RS: No | Type: RX